FAERS Safety Report 6081753-6 (Version None)
Quarter: 2009Q1

REPORT INFORMATION
  Report Type: 
  Country: None (occurrence: None)
  Receive Date: 20090218
  Receipt Date: 20090205
  Transmission Date: 20090719
  Serious: Yes (Hospitalization)
  Sender: FDA-Public Use
  Company Number: PL-PFIZER INC-2009170303

PATIENT

DRUGS (4)
  1. ZOLOFT [Suspect]
     Indication: DEPRESSION
     Dosage: UNK
     Route: 048
     Dates: start: 20081227, end: 20090103
  2. ATARAX [Suspect]
     Indication: DEPRESSION
     Dosage: UNK
     Route: 048
     Dates: start: 20081227, end: 20090103
  3. ALL OTHER THERAPEUTIC PRODUCTS [Suspect]
     Indication: DEPRESSION
     Dosage: UNK
     Route: 048
     Dates: start: 20081227, end: 20090103
  4. PRAMOLAN [Suspect]
     Indication: DEPRESSION
     Dosage: UNK
     Route: 048
     Dates: start: 20081227, end: 20090103

REACTIONS (6)
  - BALANCE DISORDER [None]
  - DISORIENTATION [None]
  - HALLUCINATION [None]
  - NIGHTMARE [None]
  - SOMNOLENCE [None]
  - VISION BLURRED [None]
